FAERS Safety Report 25701404 (Version 2)
Quarter: 2025Q3

REPORT INFORMATION
  Report Type: Report from Study
  Country: IN (occurrence: IN)
  Receive Date: 20250819
  Receipt Date: 20250916
  Transmission Date: 20251021
  Serious: Yes (Other)
  Sender: NOVARTIS
  Company Number: IN-002147023-NVSC2023IN149318

PATIENT
  Age: 60 Year
  Sex: Female

DRUGS (9)
  1. RIBOCICLIB [Suspect]
     Active Substance: RIBOCICLIB
     Indication: Breast cancer metastatic
     Dosage: 600 MG, QD
     Route: 065
     Dates: start: 20220116, end: 202212
  2. RIBOCICLIB [Suspect]
     Active Substance: RIBOCICLIB
     Dosage: 200 MG, BID
     Route: 048
     Dates: start: 20221212
  3. RIBOCICLIB [Suspect]
     Active Substance: RIBOCICLIB
     Dosage: 400 MG, QD
     Route: 048
  4. RIBOCICLIB [Suspect]
     Active Substance: RIBOCICLIB
     Dosage: 200 MG, BID (DAILY FOR 21 DAYS)
     Route: 048
  5. RIBOCICLIB [Suspect]
     Active Substance: RIBOCICLIB
     Dosage: 600 MG, TID
     Route: 048
  6. RIBOCICLIB [Suspect]
     Active Substance: RIBOCICLIB
     Dosage: 200 MG, TID (1-1-1)
     Route: 048
  7. RIBOCICLIB [Suspect]
     Active Substance: RIBOCICLIB
     Dosage: 200 MG, BID (1-1)
     Route: 048
  8. RIBOCICLIB [Suspect]
     Active Substance: RIBOCICLIB
     Dosage: 200 MG, TID (1-1-1) (THREE TIMES A DAY)
     Route: 048
     Dates: start: 20250517
  9. RIBOCICLIB [Suspect]
     Active Substance: RIBOCICLIB
     Dosage: 200 MG, BID (1-0-1) (TWO TIMES A DAY)
     Route: 048
     Dates: start: 20250805

REACTIONS (24)
  - Breast cancer metastatic [Unknown]
  - Malignant neoplasm progression [Unknown]
  - Leukopenia [Unknown]
  - Metastases to lung [Unknown]
  - Metastases to bone [Unknown]
  - Metastases to liver [Unknown]
  - Metastases to central nervous system [Unknown]
  - Metastases to lymph nodes [Unknown]
  - Peritoneal carcinoma metastatic [Unknown]
  - White blood cells urine positive [Unknown]
  - Vitamin D decreased [Unknown]
  - Blood thyroid stimulating hormone increased [Unknown]
  - Skin lesion [Unknown]
  - Osteosclerosis [Unknown]
  - Blood creatinine abnormal [Unknown]
  - Anaemia [Unknown]
  - Red blood cell sedimentation rate increased [Unknown]
  - Vitamin B12 increased [Unknown]
  - Bilirubin conjugated increased [Unknown]
  - Blood creatinine increased [Unknown]
  - Product prescribing error [Unknown]
  - Off label use [Unknown]
  - Blood bilirubin abnormal [Unknown]
  - Prothrombin time abnormal [Unknown]

NARRATIVE: CASE EVENT DATE: 20230906
